FAERS Safety Report 6525025-1 (Version None)
Quarter: 2010Q1

REPORT INFORMATION
  Report Type: 
  Country: None (occurrence: None)
  Receive Date: 20100104
  Receipt Date: 20091221
  Transmission Date: 20100710
  Serious: Yes (Other)
  Sender: FDA-Public Use
  Company Number: US-PFIZER INC-2009313844

PATIENT
  Sex: Female
  Weight: 75.749 kg

DRUGS (1)
  1. REVATIO [Suspect]
     Indication: PULMONARY HYPERTENSION
     Dosage: FREQUENCY: 3X/DAY,
     Route: 048
     Dates: end: 20091218

REACTIONS (1)
  - SYNCOPE [None]
